FAERS Safety Report 10154793 (Version 1)
Quarter: 2014Q2

REPORT INFORMATION
  Report Type: Spontaneous
  Country: PR (occurrence: None)
  Receive Date: 20140505
  Receipt Date: 20140505
  Transmission Date: 20141212
  Serious: No
  Sender: FDA-Public Use
  Company Number: None

PATIENT
  Age: 38 Year
  Sex: Female
  Weight: 72.58 kg

DRUGS (1)
  1. PATADAY [Suspect]
     Indication: HYPERSENSITIVITY
     Dosage: 1 DROP, ONCE DAILY, INTO THE EYE COMPLETE BOTTLE

REACTIONS (2)
  - Nasopharyngitis [None]
  - Pharyngitis [None]
